FAERS Safety Report 13997878 (Version 1)
Quarter: 2017Q3

REPORT INFORMATION
  Report Type: Spontaneous
  Country: JP (occurrence: JP)
  Receive Date: 20170921
  Receipt Date: 20170921
  Transmission Date: 20171128
  Serious: Yes (Hospitalization, Other)
  Sender: FDA-Public Use
  Company Number: JP-SHIRE-JP201712653

PATIENT
  Age: 85 Year
  Sex: Female

DRUGS (16)
  1. ALFACALCIDOL [Concomitant]
     Active Substance: ALFACALCIDOL
     Indication: PRODUCT USED FOR UNKNOWN INDICATION
     Dosage: 0.5 MICROGRAMS, UNK
     Route: 048
  2. CALONAL [Concomitant]
     Active Substance: ACETAMINOPHEN
     Indication: PRODUCT USED FOR UNKNOWN INDICATION
     Dosage: 400 MG, UNKNOWN
     Route: 065
  3. ITRACONAZOLE. [Concomitant]
     Active Substance: ITRACONAZOLE
     Indication: PRODUCT USED FOR UNKNOWN INDICATION
  4. THIAMINE DISULFIDE [Concomitant]
     Active Substance: THIAMINE DISULFIDE
     Indication: PRODUCT USED FOR UNKNOWN INDICATION
  5. ANPLAG [Concomitant]
     Active Substance: SARPOGRELATE
     Indication: PRODUCT USED FOR UNKNOWN INDICATION
     Dosage: 300 MG, UNKNOWN
     Route: 048
  6. LANSOPRAZOLE. [Concomitant]
     Active Substance: LANSOPRAZOLE
     Indication: PRODUCT USED FOR UNKNOWN INDICATION
  7. MUCOSOLVAN [Concomitant]
     Active Substance: AMBROXOL HYDROCHLORIDE
     Indication: PRODUCT USED FOR UNKNOWN INDICATION
     Dosage: 45 MG, UNKNOWN
     Route: 048
  8. RIONA [Concomitant]
     Active Substance: FERRIC CITRATE ANHYDROUS
     Indication: PRODUCT USED FOR UNKNOWN INDICATION
     Dosage: 1500 MG, UNKNOWN
     Route: 048
  9. FOSRENOL [Suspect]
     Active Substance: LANTHANUM CARBONATE
     Indication: HYPERPHOSPHATAEMIA
     Dosage: 1500 MG, UNK
     Route: 048
     Dates: start: 20170418, end: 20170509
  10. PYRIDOXINE HYDROCHLORIDE. [Concomitant]
     Active Substance: PYRIDOXINE HYDROCHLORIDE
     Indication: PRODUCT USED FOR UNKNOWN INDICATION
  11. FOSRENOL [Suspect]
     Active Substance: LANTHANUM CARBONATE
     Dosage: 1500 MG, UNKNOWN (TOTAL DAILY DOSE)
     Route: 048
  12. SENNOSIDE                          /00571901/ [Concomitant]
     Active Substance: SENNOSIDES A AND B
     Indication: PRODUCT USED FOR UNKNOWN INDICATION
     Dosage: 24 MG, UNKNOWN
     Route: 048
  13. ETIZOLAM [Concomitant]
     Active Substance: ETIZOLAM
     Indication: PRODUCT USED FOR UNKNOWN INDICATION
     Dosage: 0.5 MG, UNKNOWN
     Route: 048
  14. SODIUM ALGINATE [Concomitant]
     Active Substance: SODIUM ALGINATE
     Indication: PRODUCT USED FOR UNKNOWN INDICATION
  15. TRIAZOLAM. [Concomitant]
     Active Substance: TRIAZOLAM
     Indication: PRODUCT USED FOR UNKNOWN INDICATION
     Dosage: 0.125 MG, UNKNOWN
     Route: 048
  16. HYDROXOCOBALAMIN ACETATE. [Concomitant]
     Active Substance: HYDROXOCOBALAMIN ACETATE
     Indication: PRODUCT USED FOR UNKNOWN INDICATION

REACTIONS (5)
  - Decreased appetite [Recovered/Resolved]
  - Foreign body in gastrointestinal tract [Recovered/Resolved]
  - Medication residue present [Recovered/Resolved]
  - Oesophageal obstruction [Recovered/Resolved]
  - Oesophageal ulcer [Recovered/Resolved]

NARRATIVE: CASE EVENT DATE: 20170418
